FAERS Safety Report 8234147-9 (Version None)
Quarter: 2012Q1

REPORT INFORMATION
  Report Type: 
  Country: None (occurrence: None)
  Receive Date: 20120326
  Receipt Date: 20120314
  Transmission Date: 20120608
  Serious: Yes (Hospitalization, Other)
  Sender: FDA-Public Use
  Company Number: US-BAYER-2011-038656

PATIENT
  Age: 17 Year
  Sex: Female
  Weight: 77.098 kg

DRUGS (7)
  1. PRILOSEC [Concomitant]
     Route: 048
  2. VICODIN [Concomitant]
     Indication: PAIN
     Dosage: UNK UNK, PRN
     Route: 048
  3. COMPAZINE [Concomitant]
     Indication: NAUSEA
     Dosage: UNK UNK, PRN
     Route: 048
  4. YAZ [Suspect]
     Indication: CONTRACEPTION
     Dosage: UNK
     Dates: start: 20070101, end: 20090101
  5. SYNTHROID [Concomitant]
     Route: 048
  6. ALBUTEROL [Concomitant]
     Dosage: UNK
     Route: 048
     Dates: start: 20081006
  7. ADVAIR DISKUS 100/50 [Concomitant]
     Dosage: UNK
     Route: 048
     Dates: start: 20081006

REACTIONS (11)
  - DEPRESSION [None]
  - PAIN [None]
  - FLATULENCE [None]
  - SCAR [None]
  - ABDOMINAL DISTENSION [None]
  - CHOLECYSTITIS CHRONIC [None]
  - CHOLECYSTECTOMY [None]
  - CONSTIPATION [None]
  - DYSPEPSIA [None]
  - DIARRHOEA [None]
  - ANXIETY [None]
